FAERS Safety Report 10274004 (Version 1)
Quarter: 2014Q2

REPORT INFORMATION
  Report Type: Spontaneous
  Country: US (occurrence: None)
  Receive Date: 20140630
  Receipt Date: 20140630
  Transmission Date: 20141212
  Serious: Yes (Hospitalization, Other)
  Sender: FDA-Public Use
  Company Number: None

PATIENT
  Age: 57 Year
  Sex: Female

DRUGS (2)
  1. IMBRUVICA 140MG CAPS, TAKE 4 CAPS ONCE DAILY JOHNSON AND JOHNSON [Suspect]
     Indication: MANTLE CELL LYMPHOMA
     Route: 048
     Dates: start: 20140506
  2. IMBRUVICA 140MG CAPS, TAKE 4 CAPS ONCE DAILY JOHNSON AND JOHNSON [Suspect]
     Route: 048
     Dates: start: 20140506

REACTIONS (1)
  - Pneumonia [None]
